FAERS Safety Report 17136961 (Version 1)
Quarter: 2019Q4

REPORT INFORMATION
  Report Type: Report from Study
  Country: US (occurrence: US)
  Receive Date: 20191210
  Receipt Date: 20191210
  Transmission Date: 20200122
  Serious: Yes (Death, Other)
  Sender: FDA-Public Use
  Company Number: US-BRISTOL-MYERS SQUIBB COMPANY-BMS-2019-118278

PATIENT
  Age: 88 Year
  Sex: Male

DRUGS (2)
  1. BLINDED APIXABAN [Suspect]
     Active Substance: APIXABAN
     Indication: CEREBROVASCULAR ACCIDENT PROPHYLAXIS
     Dosage: 2.5 MILLIGRAM
     Route: 065
     Dates: start: 20180511, end: 20180515
  2. BLINDED ASPIRIN [Suspect]
     Active Substance: ASPIRIN
     Indication: CEREBROVASCULAR ACCIDENT PROPHYLAXIS
     Dosage: 2.5 MILLIGRAM
     Route: 065
     Dates: start: 20180511, end: 20180515

REACTIONS (1)
  - Death [Fatal]

NARRATIVE: CASE EVENT DATE: 20191023
